FAERS Safety Report 5598371-6 (Version None)
Quarter: 2008Q1

REPORT INFORMATION
  Report Type: 
  Country: None (occurrence: None)
  Receive Date: 20080122
  Receipt Date: 20080111
  Transmission Date: 20080703
  Serious: Yes (Other)
  Sender: FDA-Public Use
  Company Number: US-GENENTECH-254200

PATIENT
  Sex: Male

DRUGS (1)
  1. RITUXAN [Suspect]
     Indication: HAEMOLYTIC ANAEMIA
     Dosage: UNK UNK, UNKNOWN
     Route: 065

REACTIONS (2)
  - MYELOFIBROSIS [None]
  - PANCYTOPENIA [None]
